FAERS Safety Report 6712315-2 (Version None)
Quarter: 2010Q2

REPORT INFORMATION
  Report Type: 
  Country: None (occurrence: None)
  Receive Date: 20100505
  Receipt Date: 20100429
  Transmission Date: 20101027
  Serious: Yes (Hospitalization)
  Sender: FDA-Public Use
  Company Number: US-GILEAD-2010-0028775

PATIENT
  Sex: Male
  Weight: 116 kg

DRUGS (20)
  1. LETAIRIS [Suspect]
     Indication: PULMONARY ARTERIAL HYPERTENSION
     Route: 048
     Dates: start: 20091229, end: 20100415
  2. COREG [Concomitant]
  3. IMDUR [Concomitant]
  4. TORSEMIDE [Concomitant]
  5. ALDACTAZIDE [Concomitant]
  6. VYTORIN [Concomitant]
  7. LOVAZA [Concomitant]
  8. NITRO-BID [Concomitant]
  9. ASPIRIN [Concomitant]
  10. GLIPIZIDE [Concomitant]
  11. PROTONIX [Concomitant]
  12. DARVOCET-N 100 [Concomitant]
  13. ZOLOFT [Concomitant]
  14. AMBIEN [Concomitant]
  15. DIAZEPAM [Concomitant]
  16. ALLOPURINOL [Concomitant]
  17. TYLENOL-500 [Concomitant]
  18. MULTI-VITAMIN [Concomitant]
  19. VITAMIN D3 [Concomitant]
  20. VITAMIN C [Concomitant]

REACTIONS (1)
  - CARDIAC FAILURE CONGESTIVE [None]
